FAERS Safety Report 18071911 (Version 1)
Quarter: 2020Q3

REPORT INFORMATION
  Report Type: Spontaneous
  Country: FR (occurrence: FR)
  Receive Date: 20200727
  Receipt Date: 20200727
  Transmission Date: 20201103
  Serious: Yes (Other)
  Sender: FDA-Public Use
  Company Number: FR-ACCORD-192705

PATIENT
  Age: 72 Year
  Sex: Female
  Weight: 60 kg

DRUGS (8)
  1. LORMETAZEPAM [Concomitant]
     Active Substance: LORMETAZEPAM
     Indication: MIXED ANXIETY AND DEPRESSIVE DISORDER
     Route: 048
     Dates: end: 20200615
  2. BRINTELLIX [Concomitant]
     Active Substance: VORTIOXETINE HYDROBROMIDE
     Indication: MIXED ANXIETY AND DEPRESSIVE DISORDER
     Dosage: STRENGTH?15 MG FILM?COATED TABLET
     Route: 048
     Dates: start: 2020, end: 20200615
  3. MACROGOL 4000 [Concomitant]
     Active Substance: POLYETHYLENE GLYCOL 4000
     Indication: PROPHYLAXIS
     Route: 048
     Dates: end: 20200615
  4. MIRTAZAPINE. [Interacting]
     Active Substance: MIRTAZAPINE
     Indication: MIXED ANXIETY AND DEPRESSIVE DISORDER
     Route: 048
     Dates: start: 2020, end: 202006
  5. CLOMIPRAMINE [Interacting]
     Active Substance: CLOMIPRAMINE
     Indication: MIXED ANXIETY AND DEPRESSIVE DISORDER
     Route: 048
     Dates: end: 20200615
  6. QUETIAPINE. [Suspect]
     Active Substance: QUETIAPINE
     Indication: MIXED ANXIETY AND DEPRESSIVE DISORDER
     Route: 048
     Dates: end: 20200612
  7. LAMOTRIGINE. [Concomitant]
     Active Substance: LAMOTRIGINE
     Indication: MIXED ANXIETY AND DEPRESSIVE DISORDER
     Route: 048
     Dates: start: 2016, end: 20200615
  8. LORAZEPAM. [Concomitant]
     Active Substance: LORAZEPAM
     Indication: MIXED ANXIETY AND DEPRESSIVE DISORDER
     Route: 048
     Dates: end: 20200615

REACTIONS (2)
  - Urinary retention [Recovered/Resolved]
  - Drug interaction [Recovered/Resolved]

NARRATIVE: CASE EVENT DATE: 20200611
